FAERS Safety Report 20439350 (Version 3)
Quarter: 2022Q1

REPORT INFORMATION
  Report Type: Other
  Country: CA (occurrence: CA)
  Receive Date: 20220207
  Receipt Date: 20220322
  Transmission Date: 20220423
  Serious: Yes (Hospitalization, Other)
  Sender: FDA-Public Use
  Company Number: CA-002147023-PHHY2017CA189593

PATIENT
  Age: 61 Year
  Sex: Male

DRUGS (39)
  1. XOLAIR [Suspect]
     Active Substance: OMALIZUMAB
     Indication: Bronchopulmonary aspergillosis allergic
     Route: 058
     Dates: start: 20111228
  2. XOLAIR [Suspect]
     Active Substance: OMALIZUMAB
     Indication: Asthma
     Route: 058
     Dates: start: 2013
  3. XOLAIR [Suspect]
     Active Substance: OMALIZUMAB
     Route: 058
     Dates: start: 20150130
  4. XOLAIR [Suspect]
     Active Substance: OMALIZUMAB
     Route: 058
     Dates: start: 2015
  5. XOLAIR [Suspect]
     Active Substance: OMALIZUMAB
     Route: 058
     Dates: start: 20170127
  6. XOLAIR [Suspect]
     Active Substance: OMALIZUMAB
     Route: 058
     Dates: start: 20171130
  7. XOLAIR [Suspect]
     Active Substance: OMALIZUMAB
     Route: 058
     Dates: start: 20180214
  8. XOLAIR [Suspect]
     Active Substance: OMALIZUMAB
     Route: 058
     Dates: start: 20180301
  9. XOLAIR [Suspect]
     Active Substance: OMALIZUMAB
     Route: 058
     Dates: start: 20180927
  10. XOLAIR [Suspect]
     Active Substance: OMALIZUMAB
     Route: 058
     Dates: start: 20181220
  11. XOLAIR [Suspect]
     Active Substance: OMALIZUMAB
     Route: 058
     Dates: start: 20190207
  12. XOLAIR [Suspect]
     Active Substance: OMALIZUMAB
     Route: 058
     Dates: start: 201902
  13. XOLAIR [Suspect]
     Active Substance: OMALIZUMAB
     Route: 058
     Dates: start: 20190221
  14. XOLAIR [Suspect]
     Active Substance: OMALIZUMAB
     Route: 058
     Dates: start: 20190321
  15. XOLAIR [Suspect]
     Active Substance: OMALIZUMAB
     Route: 058
     Dates: start: 20190923
  16. XOLAIR [Suspect]
     Active Substance: OMALIZUMAB
     Route: 058
     Dates: start: 201905
  17. XOLAIR [Suspect]
     Active Substance: OMALIZUMAB
     Route: 058
     Dates: start: 20191015
  18. XOLAIR [Suspect]
     Active Substance: OMALIZUMAB
     Route: 058
     Dates: start: 20191029
  19. XOLAIR [Suspect]
     Active Substance: OMALIZUMAB
     Route: 058
     Dates: start: 20191112
  20. XOLAIR [Suspect]
     Active Substance: OMALIZUMAB
     Route: 058
     Dates: start: 20191126
  21. XOLAIR [Suspect]
     Active Substance: OMALIZUMAB
     Route: 058
     Dates: start: 20200218
  22. XOLAIR [Suspect]
     Active Substance: OMALIZUMAB
     Route: 058
  23. XOLAIR [Suspect]
     Active Substance: OMALIZUMAB
     Route: 058
  24. XOLAIR [Suspect]
     Active Substance: OMALIZUMAB
     Route: 058
     Dates: start: 20170124
  25. XOLAIR [Suspect]
     Active Substance: OMALIZUMAB
     Route: 058
     Dates: start: 20210324
  26. XOLAIR [Suspect]
     Active Substance: OMALIZUMAB
     Route: 058
     Dates: start: 20210505
  27. XOLAIR [Suspect]
     Active Substance: OMALIZUMAB
     Route: 058
     Dates: start: 20210618
  28. XOLAIR [Suspect]
     Active Substance: OMALIZUMAB
     Route: 058
     Dates: start: 20210728
  29. XOLAIR [Suspect]
     Active Substance: OMALIZUMAB
     Route: 058
  30. XOLAIR [Suspect]
     Active Substance: OMALIZUMAB
     Route: 058
     Dates: start: 20111228
  31. XOLAIR [Suspect]
     Active Substance: OMALIZUMAB
     Route: 058
     Dates: start: 20111228
  32. XOLAIR [Suspect]
     Active Substance: OMALIZUMAB
     Route: 058
     Dates: start: 20220209
  33. XOLAIR [Suspect]
     Active Substance: OMALIZUMAB
     Route: 058
     Dates: start: 20220209
  34. TOBRAMYCIN [Suspect]
     Active Substance: TOBRAMYCIN
     Indication: Product used for unknown indication
     Route: 065
  35. MONUROL [Suspect]
     Active Substance: FOSFOMYCIN TROMETHAMINE
     Indication: Product used for unknown indication
     Route: 065
  36. ADVAIR HFA [Concomitant]
     Active Substance: FLUTICASONE PROPIONATE\SALMETEROL XINAFOATE
     Indication: Product used for unknown indication
     Dosage: 50 MG, BID
     Route: 065
  37. SINGULAIR [Concomitant]
     Active Substance: MONTELUKAST SODIUM
     Indication: Product used for unknown indication
     Dosage: UNK
     Route: 065
  38. VENTOLIN [Concomitant]
     Active Substance: ALBUTEROL SULFATE
     Indication: Product used for unknown indication
     Dosage: UNK
     Route: 065
  39. PREDNISONE [Concomitant]
     Active Substance: PREDNISONE

REACTIONS (46)
  - Intestinal obstruction [Unknown]
  - Aphonia [Unknown]
  - Dyspnoea [Not Recovered/Not Resolved]
  - Deep vein thrombosis [Unknown]
  - Pseudomonas infection [Recovered/Resolved]
  - Pulmonary thrombosis [Unknown]
  - Small intestinal obstruction [Unknown]
  - Gastrointestinal haemorrhage [Unknown]
  - Lower respiratory tract infection [Unknown]
  - Coagulopathy [Unknown]
  - Pulmonary embolism [Unknown]
  - Respiratory tract irritation [Recovered/Resolved]
  - Nephrolithiasis [Unknown]
  - Cronobacter infection [Unknown]
  - Pneumonia [Recovering/Resolving]
  - Infected dermal cyst [Unknown]
  - Prostate cancer [Recovering/Resolving]
  - Lung disorder [Unknown]
  - Heart rate decreased [Unknown]
  - Device related thrombosis [Unknown]
  - Tooth fracture [Unknown]
  - Heart rate irregular [Unknown]
  - Blood pressure systolic increased [Not Recovered/Not Resolved]
  - Weight decreased [Unknown]
  - Sputum discoloured [Recovered/Resolved]
  - Erythema [Not Recovered/Not Resolved]
  - Aphonia [Unknown]
  - Haemoptysis [Unknown]
  - Periorbital oedema [Not Recovered/Not Resolved]
  - Pruritus [Unknown]
  - Rhinorrhoea [Unknown]
  - Eye pruritus [Unknown]
  - Eye swelling [Unknown]
  - Back pain [Unknown]
  - Pain in extremity [Unknown]
  - Dry skin [Unknown]
  - Malaise [Unknown]
  - Rib fracture [Unknown]
  - Pain [Unknown]
  - Sputum increased [Unknown]
  - Wound [Unknown]
  - Product dose omission issue [Unknown]
  - Fatigue [Unknown]
  - Hypersensitivity [Unknown]
  - Productive cough [Not Recovered/Not Resolved]
  - Hypersensitivity [Unknown]

NARRATIVE: CASE EVENT DATE: 20180201
